FAERS Safety Report 7948611-0 (Version None)
Quarter: 2011Q4

REPORT INFORMATION
  Report Type: 
  Country: None (occurrence: None)
  Receive Date: 20111130
  Receipt Date: 20111122
  Transmission Date: 20120403
  Serious: Yes (Hospitalization, Other)
  Sender: FDA-Public Use
  Company Number: US-AMGEN-USASP2011059254

PATIENT
  Age: 55 Year
  Sex: Female

DRUGS (2)
  1. ENBREL [Suspect]
     Indication: RHEUMATOID ARTHRITIS
     Dosage: 50 MG, UNK
     Dates: start: 20111101
  2. ENBREL [Suspect]
     Dosage: 50 MG, QWK
     Dates: start: 20101118, end: 20111026

REACTIONS (3)
  - ARTHRALGIA [None]
  - ARTHRITIS [None]
  - INJECTION SITE PAIN [None]
